FAERS Safety Report 4614863-8 (Version None)
Quarter: 2005Q1

REPORT INFORMATION
  Report Type: 
  Country: None (occurrence: None)
  Receive Date: 20050318
  Receipt Date: 20050318
  Transmission Date: 20050727
  Serious: Yes (Life-Threatening, Hospitalization)
  Sender: FDA-Public Use
  Company Number: None

PATIENT
  Age: 84 Year
  Sex: Male
  Weight: 91 kg

DRUGS (12)
  1. GATIFLOXACIN [Suspect]
     Indication: TRANSURETHRAL BLADDER RESECTION
     Dosage: 400MG  QD  ORAL
     Route: 048
     Dates: start: 20050310, end: 20050311
  2. WARFARIN [Concomitant]
  3. SIMVASTATIN [Concomitant]
  4. BUPROPION HCL [Concomitant]
  5. GLYBURIDE [Concomitant]
  6. CALCITRIOL [Concomitant]
  7. METOPROLOL SUCCINATE [Concomitant]
  8. AMIODARONE [Concomitant]
  9. OXYBUTYNIN [Concomitant]
  10. OMEPRAZOLE [Concomitant]
  11. CA CARB [Concomitant]
  12. GOSERILIN [Concomitant]

REACTIONS (1)
  - HYPOGLYCAEMIA [None]
